FAERS Safety Report 20090432 (Version 1)
Quarter: 2021Q4

REPORT INFORMATION
  Report Type: Report from Study
  Country: BR (occurrence: BR)
  Receive Date: 20211119
  Receipt Date: 20211119
  Transmission Date: 20220303
  Serious: Yes (Life-Threatening, Hospitalization)
  Sender: FDA-Public Use
  Company Number: BR-ABBVIE-21K-020-4166945-00

PATIENT
  Sex: Female
  Weight: 100 kg

DRUGS (1)
  1. RINVOQ [Suspect]
     Active Substance: UPADACITINIB
     Indication: Rheumatoid arthritis
     Route: 048
     Dates: start: 20210806, end: 20211019

REACTIONS (13)
  - Renal impairment [Recovering/Resolving]
  - Blister [Recovering/Resolving]
  - Rash macular [Recovering/Resolving]
  - Blister rupture [Unknown]
  - Nosocomial infection [Recovering/Resolving]
  - Hypersensitivity [Recovering/Resolving]
  - Skin swelling [Recovering/Resolving]
  - Sensitive skin [Recovering/Resolving]
  - Skin exfoliation [Recovering/Resolving]
  - Skin burning sensation [Recovering/Resolving]
  - Pruritus [Recovering/Resolving]
  - Paraesthesia [Recovering/Resolving]
  - Peripheral swelling [Recovering/Resolving]

NARRATIVE: CASE EVENT DATE: 20210101
